FAERS Safety Report 6128106-X (Version None)
Quarter: 2009Q1

REPORT INFORMATION
  Report Type: 
  Country: None (occurrence: None)
  Receive Date: 20090320
  Receipt Date: 20090320
  Transmission Date: 20090719
  Serious: Yes (Other)
  Sender: FDA-Public Use
  Company Number: None

PATIENT
  Age: 26 Year
  Sex: Female
  Weight: 54.4316 kg

DRUGS (1)
  1. GEODON [Suspect]

REACTIONS (4)
  - DYSPHAGIA [None]
  - DYSPNOEA [None]
  - FATIGUE [None]
  - FEAR [None]
